FAERS Safety Report 11286359 (Version 1)
Quarter: 2015Q3

REPORT INFORMATION
  Report Type: Spontaneous
  Country: US (occurrence: US)
  Receive Date: 20150721
  Receipt Date: 20150721
  Transmission Date: 20151125
  Serious: No
  Sender: FDA-Public Use
  Company Number: US-UNITED THERAPEUTICS-UNT-2015-001709

PATIENT
  Age: 58 Year
  Sex: Female
  Weight: 61.22 kg

DRUGS (2)
  1. OPSUMIT [Concomitant]
     Active Substance: MACITENTAN
     Indication: PRODUCT USED FOR UNKNOWN INDICATION
  2. TYVASO [Suspect]
     Active Substance: TREPROSTINIL
     Indication: PULMONARY HYPERTENSION
     Dosage: 18-54 MICROGRAMS, QID
     Dates: start: 20141013

REACTIONS (7)
  - Headache [Unknown]
  - Nasopharyngitis [Unknown]
  - Eye oedema [Unknown]
  - Productive cough [Unknown]
  - Chills [Unknown]
  - Eye injury [Unknown]
  - Nasal congestion [Unknown]

NARRATIVE: CASE EVENT DATE: 201502
